FAERS Safety Report 23283568 (Version 1)
Quarter: 2023Q4

REPORT INFORMATION
  Report Type: Spontaneous
  Country: CA (occurrence: CA)
  Receive Date: 20231211
  Receipt Date: 20231211
  Transmission Date: 20240110
  Serious: Yes (Life-Threatening, Other)
  Sender: FDA-Public Use
  Company Number: CA-FreseniusKabi-FK202319797

PATIENT
  Age: 22 Year
  Sex: Male

DRUGS (1)
  1. FENTANYL [Suspect]
     Active Substance: FENTANYL\FENTANYL CITRATE
     Indication: Pain
     Dosage: DOSAGE FORM: NOT SPECIFIED?DOSAGE: 100 MG?FREQUENCY: ONCE?INTRAVENOUS
     Route: 042

REACTIONS (4)
  - Apnoea [Recovered/Resolved]
  - Loss of consciousness [Recovered/Resolved]
  - Overdose [Recovered/Resolved]
  - Resuscitation [Recovered/Resolved]
